FAERS Safety Report 5675987-X (Version None)
Quarter: 2008Q1

REPORT INFORMATION
  Report Type: 
  Country: None (occurrence: None)
  Receive Date: 20080318
  Receipt Date: 20080228
  Transmission Date: 20080703
  Serious: No
  Sender: FDA-Public Use
  Company Number: US022852

PATIENT
  Sex: Female

DRUGS (4)
  1. FENTORA [Suspect]
     Indication: PAIN
     Dosage: 400 UG BUCCAL
     Route: 002
  2. FENTORA [Suspect]
     Indication: PAIN
     Dosage: 600 UG BUCCAL
     Route: 002
  3. FENTORA [Suspect]
     Indication: PAIN
     Dosage: 800 UG BUCCAL
     Route: 002
  4. KADIAN [Concomitant]

REACTIONS (4)
  - BREAKTHROUGH PAIN [None]
  - DRUG PRESCRIBING ERROR [None]
  - NO THERAPEUTIC RESPONSE [None]
  - PHARMACEUTICAL PRODUCT COMPLAINT [None]
